FAERS Safety Report 18229732 (Version 1)
Quarter: 2020Q3

REPORT INFORMATION
  Report Type: Spontaneous
  Country: JP (occurrence: JP)
  Receive Date: 20200903
  Receipt Date: 20200903
  Transmission Date: 20201103
  Serious: Yes (Hospitalization)
  Sender: FDA-Public Use
  Company Number: JP-ABBVIE-20K-087-3551771-00

PATIENT
  Age: 72 Year
  Sex: Female

DRUGS (2)
  1. DUODOPA [Suspect]
     Active Substance: CARBIDOPA\LEVODOPA
  2. DUODOPA [Suspect]
     Active Substance: CARBIDOPA\LEVODOPA
     Indication: PARKINSON^S DISEASE
     Dosage: DRUG WAS STARTED IN 2013 OR 2014.
     Route: 050
     Dates: start: 2013

REACTIONS (3)
  - Sense of oppression [Unknown]
  - On and off phenomenon [Not Recovered/Not Resolved]
  - Fracture [Unknown]

NARRATIVE: CASE EVENT DATE: 20200901
